FAERS Safety Report 24300236 (Version 2)
Quarter: 2024Q3

REPORT INFORMATION
  Report Type: Spontaneous
  Country: DE (occurrence: DE)
  Receive Date: 20240909
  Receipt Date: 20240918
  Transmission Date: 20241017
  Serious: Yes (Disabling, Congenital Anomaly)
  Sender: BIOMARIN
  Company Number: DE-BIOMARINAP-DE-2024-160066

PATIENT

DRUGS (1)
  1. VIMIZIM [Suspect]
     Active Substance: ELOSULFASE ALFA
     Indication: Mucopolysaccharidosis IV
     Dosage: 100 UNK, QW
     Route: 042

REACTIONS (3)
  - Fungal infection [Recovered/Resolved]
  - Rash [Recovered/Resolved]
  - Pyrexia [Recovered/Resolved]

NARRATIVE: CASE EVENT DATE: 20240820
